FAERS Safety Report 5944070-8 (Version None)
Quarter: 2008Q4

REPORT INFORMATION
  Report Type: 
  Country: None (occurrence: None)
  Receive Date: 20081106
  Receipt Date: 20081026
  Transmission Date: 20090506
  Serious: No
  Sender: FDA-Public Use
  Company Number: US-B.I. PHARMACEUTICALS,INC./RIDGEFIELD-2008-BP-16571BP

PATIENT
  Age: 63 Year
  Sex: Female

DRUGS (9)
  1. SPIRIVA [Suspect]
     Indication: CHRONIC OBSTRUCTIVE PULMONARY DISEASE
     Dosage: 72MCG
     Route: 055
  2. SYMBICORT [Concomitant]
  3. LIBRAX [Concomitant]
     Dosage: 5MG
  4. TOPROL-XL [Concomitant]
     Dosage: 100MG
  5. HYDROCHLOROTHIAZIDE [Concomitant]
     Indication: HYPERTENSION
     Dosage: 12.5MG
  6. LIPITOR [Concomitant]
     Dosage: 20MG
  7. PROVENTIL-HFA [Concomitant]
     Dosage: 108MCG
  8. CLARINEX [Concomitant]
     Dosage: 5MG
  9. ASPIRIN [Concomitant]
     Dosage: 81MG

REACTIONS (2)
  - HYPERKALAEMIA [None]
  - INAPPROPRIATE SCHEDULE OF DRUG ADMINISTRATION [None]
